FAERS Safety Report 12454446 (Version 2)
Quarter: 2016Q2

REPORT INFORMATION
  Report Type: Spontaneous
  Country: ES (occurrence: ES)
  Receive Date: 20160610
  Receipt Date: 20160614
  Transmission Date: 20160815
  Serious: No
  Sender: FDA-Public Use
  Company Number: ES-009507513-1601ESP002380

PATIENT
  Sex: Female

DRUGS (1)
  1. NUVARING [Suspect]
     Active Substance: ETHINYL ESTRADIOL\ETONOGESTREL
     Dosage: STRENGTH ETONOGESTREL 0.120 MG/ETHYNILESTRADIOL 0.015 MG
     Route: 067
     Dates: start: 201511

REACTIONS (5)
  - Hypomenorrhoea [Not Recovered/Not Resolved]
  - Pruritus [Recovered/Resolved]
  - Breast disorder [Not Recovered/Not Resolved]
  - Dyspareunia [Recovered/Resolved]
  - Erythema [Recovered/Resolved]

NARRATIVE: CASE EVENT DATE: 201512
